FAERS Safety Report 6583878-5 (Version None)
Quarter: 2010Q1

REPORT INFORMATION
  Report Type: 
  Country: None (occurrence: None)
  Receive Date: 20100216
  Receipt Date: 20091130
  Transmission Date: 20100710
  Serious: No
  Sender: FDA-Public Use
  Company Number: US-ABBOTT-09P-163-0611657-00

PATIENT
  Sex: Male
  Weight: 105.33 kg

DRUGS (1)
  1. SIMCOR [Suspect]
     Indication: BLOOD CHOLESTEROL INCREASED
     Dosage: 500/20 MG DAILY
     Route: 048
     Dates: start: 20091116

REACTIONS (4)
  - HEADACHE [None]
  - PRURITUS [None]
  - SWELLING FACE [None]
  - URTICARIA [None]
